FAERS Safety Report 10242466 (Version 2)
Quarter: 2014Q2

REPORT INFORMATION
  Report Type: Report from Study
  Country: DE (occurrence: DE)
  Receive Date: 20140617
  Receipt Date: 20140617
  Transmission Date: 20141212
  Serious: Yes (Disabling, Other)
  Sender: FDA-Public Use
  Company Number: DE-TEVA-465877GER

PATIENT
  Age: 65 Year
  Sex: Female
  Weight: 74 kg

DRUGS (7)
  1. COPAXONE [Suspect]
     Indication: MULTIPLE SCLEROSIS
     Route: 058
     Dates: start: 19990501
  2. LIORESAL [Concomitant]
     Indication: MULTIPLE SCLEROSIS
     Route: 048
  3. SIFROL [Concomitant]
     Indication: MULTIPLE SCLEROSIS
     Dosage: 1.4 UNKNOWN DAILY;
     Route: 048
  4. DYTIDE H [Concomitant]
  5. HYDROCORTISONE [Concomitant]
     Dosage: 15 MILLIGRAM DAILY;
  6. CALCIMAGON-D3 [Concomitant]
  7. NEURONTIN [Concomitant]
     Dosage: 1600 MILLIGRAM DAILY;

REACTIONS (1)
  - Osteoporotic fracture [Not Recovered/Not Resolved]
